FAERS Safety Report 12910626 (Version 1)
Quarter: 2016Q4

REPORT INFORMATION
  Report Type: Spontaneous
  Country: US (occurrence: US)
  Receive Date: 20161102
  Receipt Date: 20161102
  Transmission Date: 20170207
  Serious: Yes (Hospitalization)
  Sender: FDA-Public Use
  Company Number: None

PATIENT
  Sex: Male
  Weight: 88.6 kg

DRUGS (2)
  1. PROPANOLOL [Concomitant]
     Active Substance: PROPRANOLOL HYDROCHLORIDE
  2. HARVONI [Suspect]
     Active Substance: LEDIPASVIR\SOFOSBUVIR
     Indication: HEPATITIS C
     Dosage: 90 LEDIPASVIR / 400 SOFOSBUVIR
     Route: 048
     Dates: start: 20160714

REACTIONS (5)
  - Varices oesophageal [None]
  - Fatigue [None]
  - Oesophagitis [None]
  - Presyncope [None]
  - Melaena [None]

NARRATIVE: CASE EVENT DATE: 20161004
